FAERS Safety Report 9799321 (Version 2)
Quarter: 2014Q1

REPORT INFORMATION
  Report Type: Spontaneous
  Country: BR (occurrence: BR)
  Receive Date: 20140106
  Receipt Date: 20140106
  Transmission Date: 20141002
  Serious: Yes (Disabling, Other)
  Sender: FDA-Public Use
  Company Number: BR-009507513-1311BRA011284

PATIENT
  Age: 46 Year
  Sex: Female
  Weight: 90 kg

DRUGS (7)
  1. MAXALT RPD [Suspect]
     Indication: MIGRAINE
     Dosage: 10 MG, PRN
     Route: 048
     Dates: start: 201212, end: 201310
  2. DAFORIN [Concomitant]
     Indication: DEPRESSION
     Dosage: 40 MG, QAM
     Route: 048
  3. DAFORIN [Concomitant]
     Dosage: 20 MG, QPM
     Route: 048
  4. RIVOTRIL [Concomitant]
     Indication: INSOMNIA
     Dosage: 2 MG, QPM
     Route: 048
  5. SYNTHROID [Concomitant]
     Indication: HYPOTHYROIDISM
     Dosage: 50 MICROGRAM, QD
     Route: 048
     Dates: start: 2007
  6. MAXSULID [Concomitant]
     Indication: MIGRAINE
     Dosage: 400 MG, Q8H
     Route: 048
     Dates: start: 2011
  7. TILATIL [Concomitant]
     Indication: MIGRAINE
     Dosage: 1 TABLET, Q8H
     Route: 048
     Dates: start: 2011

REACTIONS (6)
  - Hypertensive crisis [Recovered/Resolved]
  - Stress [Unknown]
  - Abdominal pain upper [Unknown]
  - Hypertension [Not Recovered/Not Resolved]
  - Migraine [Recovered/Resolved]
  - Vomiting [Recovered/Resolved]
